FAERS Safety Report 9615679 (Version 1)
Quarter: 2013Q4

REPORT INFORMATION
  Report Type: Spontaneous
  Country: US (occurrence: None)
  Receive Date: 20131010
  Receipt Date: 20131010
  Transmission Date: 20140711
  Serious: Yes (Other)
  Sender: FDA-Public Use
  Company Number: None

PATIENT
  Age: 59 Year
  Sex: Male
  Weight: 104.33 kg

DRUGS (1)
  1. METFORMIN [Suspect]
     Indication: TYPE 2 DIABETES MELLITUS
     Dosage: SICKNESS AT 2000 MG A DAY
     Route: 048
     Dates: start: 20040615, end: 20121203

REACTIONS (3)
  - Vomiting [None]
  - Dizziness [None]
  - Malaise [None]
